FAERS Safety Report 17056759 (Version 1)
Quarter: 2019Q4

REPORT INFORMATION
  Report Type: Report from Study
  Country: CN (occurrence: CN)
  Receive Date: 20191121
  Receipt Date: 20191121
  Transmission Date: 20200122
  Serious: Yes (Other)
  Sender: FDA-Public Use
  Company Number: CN-ROCHE-2474182

PATIENT

DRUGS (2)
  1. RITUXIMAB. [Suspect]
     Active Substance: RITUXIMAB
     Indication: LYMPHOMA
     Dosage: OSAGE OF 375 MG PER SQUARE METER OF BODY SURFACE AREA FOR 4 CONSECUTIVE WEEKS.
     Route: 041
  2. RITUXIMAB. [Suspect]
     Active Substance: RITUXIMAB
     Indication: RHEUMATOID ARTHRITIS
     Dosage: ON THE 1ST AND 15TH DAY
     Route: 042

REACTIONS (9)
  - Pulmonary embolism [Unknown]
  - Lymphatic disorder [Unknown]
  - Infection [Unknown]
  - Urticaria [Unknown]
  - Anaemia [Unknown]
  - Pneumonia [Unknown]
  - Viral corneal ulcer [Unknown]
  - Blood disorder [Unknown]
  - Cardiovascular disorder [Unknown]
